FAERS Safety Report 8165071-8 (Version None)
Quarter: 2012Q1

REPORT INFORMATION
  Report Type: 
  Country: None (occurrence: None)
  Receive Date: 20120227
  Receipt Date: 20120217
  Transmission Date: 20120608
  Serious: No
  Sender: FDA-Public Use
  Company Number: US-BIOGENIDEC-2012BI006552

PATIENT
  Age: 39 Year
  Sex: Female

DRUGS (1)
  1. AVONEX [Suspect]
     Indication: MULTIPLE SCLEROSIS
     Route: 030
     Dates: start: 20110929

REACTIONS (4)
  - INJECTION SITE DISCOLOURATION [None]
  - NASOPHARYNGITIS [None]
  - INJECTION SITE HAEMATOMA [None]
  - INJECTION SITE MASS [None]
